FAERS Safety Report 6082421-7 (Version None)
Quarter: 2009Q1

REPORT INFORMATION
  Report Type: 
  Country: None (occurrence: None)
  Receive Date: 20090218
  Receipt Date: 20090209
  Transmission Date: 20090719
  Serious: Yes (Hospitalization)
  Sender: FDA-Public Use
  Company Number: FR-MERCK-0902FRA00021

PATIENT
  Age: 65 Year
  Sex: Male

DRUGS (7)
  1. JANUVIA [Suspect]
     Indication: TYPE 2 DIABETES MELLITUS
     Route: 048
     Dates: start: 20080901, end: 20090101
  2. METFORMIN HYDROCHLORIDE [Concomitant]
     Indication: TYPE 2 DIABETES MELLITUS
     Route: 048
  3. RAMIPRIL [Concomitant]
     Route: 048
  4. ATORVASTATIN CALCIUM [Concomitant]
     Indication: DYSLIPIDAEMIA
     Route: 048
  5. ESOMEPRAZOLE MAGNESIUM [Concomitant]
     Route: 048
  6. TRIMETAZIDINE HYDROCHLORIDE [Concomitant]
     Route: 048
  7. GINKGO [Concomitant]
     Route: 048

REACTIONS (6)
  - ANURIA [None]
  - CARDIAC FAILURE [None]
  - CORONARY ARTERY INSUFFICIENCY [None]
  - OEDEMA PERIPHERAL [None]
  - PULMONARY OEDEMA [None]
  - RENAL FAILURE [None]
